FAERS Safety Report 6586866-8 (Version None)
Quarter: 2010Q1

REPORT INFORMATION
  Report Type: 
  Country: None (occurrence: None)
  Receive Date: 20100217
  Receipt Date: 20090729
  Transmission Date: 20100710
  Serious: No
  Sender: FDA-Public Use
  Company Number: US-ALLERGAN-0910621US

PATIENT
  Sex: Female

DRUGS (1)
  1. BOTOX COSMETIC [Suspect]
     Indication: SKIN WRINKLING
     Dosage: 18 UNITS, SINGLE
     Dates: start: 20090728, end: 20090728

REACTIONS (4)
  - FATIGUE [None]
  - HEAD DISCOMFORT [None]
  - SINUS HEADACHE [None]
  - THERAPEUTIC RESPONSE DECREASED [None]
